FAERS Safety Report 7293975-7 (Version None)
Quarter: 2011Q1

REPORT INFORMATION
  Report Type: 
  Country: None (occurrence: None)
  Receive Date: 20110215
  Receipt Date: 20110208
  Transmission Date: 20110831
  Serious: Yes (Other)
  Sender: FDA-Public Use
  Company Number: CHPA2011US02462

PATIENT
  Age: 8 Year
  Sex: Male
  Weight: 26.304 kg

DRUGS (1)
  1. TRIAMINIC FEVER REDUCER PAIN RELIEVER [Suspect]
     Indication: PYREXIA
     Dosage: 2 TSP, QD
     Route: 048
     Dates: start: 20110206, end: 20110206

REACTIONS (7)
  - HEART RATE INCREASED [None]
  - PSYCHOTIC DISORDER [None]
  - ABNORMAL BEHAVIOUR [None]
  - HALLUCINATION, VISUAL [None]
  - THINKING ABNORMAL [None]
  - FEELING ABNORMAL [None]
  - SCREAMING [None]
